FAERS Safety Report 15887517 (Version 1)
Quarter: 2019Q1

REPORT INFORMATION
  Report Type: Spontaneous
  Country: FR (occurrence: FR)
  Receive Date: 20190130
  Receipt Date: 20190130
  Transmission Date: 20190417
  Serious: Yes (Hospitalization)
  Sender: FDA-Public Use
  Company Number: FR-ACCORD-104147

PATIENT
  Age: 76 Year
  Sex: Male
  Weight: 91.2 kg

DRUGS (9)
  1. ESOMEPRAZOLE/ESOMEPRAZOLE MAGNESIUM/ESOMEPRAZOLE SODIUM [Concomitant]
  2. TAMSULOSIN [Concomitant]
     Active Substance: TAMSULOSIN
  3. PARACETAMOL [Concomitant]
     Active Substance: ACETAMINOPHEN
  4. BENAZEPRIL/BENAZEPRIL HYDROCHLORIDE [Concomitant]
  5. ELIQUIS [Suspect]
     Active Substance: APIXABAN
     Indication: ATRIAL FIBRILLATION
     Route: 048
     Dates: start: 20170925, end: 20180305
  6. ALLOPURINOL. [Concomitant]
     Active Substance: ALLOPURINOL
  7. SIMVASTATIN. [Suspect]
     Active Substance: SIMVASTATIN
     Indication: HYPERCHOLESTEROLAEMIA
     Route: 048
     Dates: start: 2014
  8. AVODART [Concomitant]
     Active Substance: DUTASTERIDE
  9. IXPRIM [Concomitant]
     Active Substance: ACETAMINOPHEN\TRAMADOL HYDROCHLORIDE

REACTIONS (1)
  - Haemorrhagic stroke [Not Recovered/Not Resolved]

NARRATIVE: CASE EVENT DATE: 20180305
